FAERS Safety Report 25730041 (Version 1)
Quarter: 2025Q3

REPORT INFORMATION
  Report Type: Spontaneous
  Country: US (occurrence: US)
  Receive Date: 20250827
  Receipt Date: 20250827
  Transmission Date: 20251021
  Serious: No
  Sender: SANOFI AVENTIS
  Company Number: US-SA-2025SA255575

PATIENT
  Sex: Female

DRUGS (1)
  1. DUPIXENT [Suspect]
     Active Substance: DUPILUMAB

REACTIONS (6)
  - Asthenia [Unknown]
  - Decreased appetite [Unknown]
  - Weight decreased [Unknown]
  - Urticaria [Unknown]
  - Dizziness [Unknown]
  - Insomnia [Unknown]
